FAERS Safety Report 19050474 (Version 1)
Quarter: 2021Q1

REPORT INFORMATION
  Report Type: Spontaneous
  Country: BR (occurrence: BR)
  Receive Date: 20210323
  Receipt Date: 20210323
  Transmission Date: 20210420
  Serious: Yes (Other)
  Sender: FDA-Public Use
  Company Number: BR-TAKEDA-2021TUS017628

PATIENT
  Age: 75 Year
  Sex: Male
  Weight: 82.4 kg

DRUGS (6)
  1. ATENOLOL. [Concomitant]
     Active Substance: ATENOLOL
     Indication: HYPERTENSION
     Dosage: UNK UNK, QD
     Route: 065
  2. DEXILANT [Suspect]
     Active Substance: DEXLANSOPRAZOLE
     Indication: DIVERTICULITIS
  3. MESACOL MMX [Suspect]
     Active Substance: MESALAMINE
     Indication: GASTRITIS
     Dosage: 1200 MILLIGRAM, BID
     Route: 048
     Dates: start: 20210225, end: 20210306
  4. DEXILANT [Suspect]
     Active Substance: DEXLANSOPRAZOLE
     Indication: GASTRITIS
     Dosage: 60 MILLIGRAM, QD
     Route: 048
     Dates: start: 20210225, end: 20210306
  5. TREZOR [ROSUVASTATIN CALCIUM] [Concomitant]
     Indication: BLOOD CHOLESTEROL ABNORMAL
     Dosage: UNK UNK, QD
     Route: 065
  6. MESACOL MMX [Suspect]
     Active Substance: MESALAMINE
     Indication: DIVERTICULITIS

REACTIONS (8)
  - Inappropriate schedule of product administration [Recovered/Resolved]
  - Decreased appetite [Unknown]
  - Dyspepsia [Unknown]
  - Pain [Unknown]
  - Off label use [Recovered/Resolved]
  - Gastric ulcer [Unknown]
  - Abdominal discomfort [Unknown]
  - Weight decreased [Unknown]

NARRATIVE: CASE EVENT DATE: 20210225
